FAERS Safety Report 10190993 (Version 1)
Quarter: 2014Q2

REPORT INFORMATION
  Report Type: Report from Study
  Country: JP (occurrence: JP)
  Receive Date: 20140523
  Receipt Date: 20140523
  Transmission Date: 20141212
  Serious: Yes (Other)
  Sender: FDA-Public Use
  Company Number: JP-ROCHE-GNE319651

PATIENT
  Age: 80 Year
  Sex: Female

DRUGS (9)
  1. ALTEPLASE [Suspect]
     Indication: EMBOLIC STROKE
     Dosage: 15 MIU, UNK
     Route: 042
     Dates: start: 20100820, end: 20100820
  2. RADICUT [Concomitant]
     Indication: PRODUCT USED FOR UNKNOWN INDICATION
     Dosage: 60 MG, QD
     Route: 041
     Dates: start: 20100820, end: 20100823
  3. HEPARIN SODIUM [Concomitant]
     Indication: PRODUCT USED FOR UNKNOWN INDICATION
     Dosage: UNK
     Route: 041
     Dates: start: 20100820, end: 20100823
  4. ADALAT CR [Concomitant]
     Route: 048
     Dates: start: 20100820
  5. SIGMART [Concomitant]
     Route: 048
     Dates: start: 20100820
  6. SELARA [Concomitant]
     Route: 048
     Dates: start: 20100820
  7. HERBESSER R [Concomitant]
     Route: 048
     Dates: start: 20100820
  8. UNIPHYL [Concomitant]
     Route: 048
     Dates: start: 20100820
  9. WARFARIN POTASSIUM [Concomitant]
     Route: 048
     Dates: start: 20100826

REACTIONS (1)
  - Muscle haemorrhage [Recovered/Resolved]
